FAERS Safety Report 4455999-4 (Version None)
Quarter: 2004Q3

REPORT INFORMATION
  Report Type: 
  Country: None (occurrence: None)
  Receive Date: 20040920
  Receipt Date: 20040907
  Transmission Date: 20050211
  Serious: Yes (Hospitalization)
  Sender: FDA-Public Use
  Company Number: 02100-UK-04-0009

PATIENT
  Age: 54 Year
  Sex: Female

DRUGS (2)
  1. CILOSTAZOL [Suspect]
     Indication: CEREBRAL INFARCTION
     Route: 048
  2. AMANTADINE HCL [Concomitant]

REACTIONS (1)
  - POST PROCEDURAL HAEMORRHAGE [None]
